FAERS Safety Report 9144356 (Version 1)
Quarter: 2013Q1

REPORT INFORMATION
  Report Type: Spontaneous
  Country: MX (occurrence: MX)
  Receive Date: 20130306
  Receipt Date: 20130306
  Transmission Date: 20140127
  Serious: Yes (Hospitalization, Other)
  Sender: FDA-Public Use
  Company Number: MX-PFIZER INC-2005044269

PATIENT
  Age: 73 Year
  Sex: Male
  Weight: 65 kg

DRUGS (4)
  1. VALDURE [Suspect]
     Indication: RIB FRACTURE
     Dosage: 40MG ONCE A DAY
     Route: 048
     Dates: start: 20050221, end: 20050306
  2. VALDURE [Suspect]
     Indication: PAIN
  3. ACETYLSALICYLIC ACID/CITRIC ACID/SODIUM BICARBONATE [Concomitant]
     Indication: HYPERCHLORHYDRIA
     Route: 065
  4. BISMUTH SUBSALICYLATE [Concomitant]
     Indication: DIARRHOEA
     Route: 065

REACTIONS (3)
  - Azotaemia [Unknown]
  - Renal failure acute [Recovering/Resolving]
  - Haemoglobin decreased [Unknown]
